FAERS Safety Report 13164157 (Version 1)
Quarter: 2017Q1

REPORT INFORMATION
  Report Type: Spontaneous
  Country: GR (occurrence: GR)
  Receive Date: 20170130
  Receipt Date: 20170130
  Transmission Date: 20170428
  Serious: Yes (Death, Other)
  Sender: FDA-Public Use
  Company Number: GR-TEVA-730730ISR

PATIENT
  Age: 71 Year
  Sex: Female

DRUGS (3)
  1. MIRAPEXIN [Concomitant]
     Active Substance: PRAMIPEXOLE
  2. STALEVO [Concomitant]
     Active Substance: CARBIDOPA\ENTACAPONE\LEVODOPA
  3. AZILECT [Suspect]
     Active Substance: RASAGILINE MESYLATE
     Indication: PARKINSON^S DISEASE
     Dosage: 1 MILLIGRAM DAILY; 1 MG
     Route: 048
     Dates: start: 201609, end: 201612

REACTIONS (2)
  - Hyperkinesia [Recovering/Resolving]
  - Gastroenteritis [Fatal]
